FAERS Safety Report 16382920 (Version 1)
Quarter: 2019Q2

REPORT INFORMATION
  Report Type: Spontaneous
  Country: FR (occurrence: FR)
  Receive Date: 20190603
  Receipt Date: 20190603
  Transmission Date: 20190711
  Serious: Yes (Congenital Anomaly)
  Sender: FDA-Public Use
  Company Number: FR-ZYDUS-037283

PATIENT

DRUGS (4)
  1. AZATHIOPRINE. [Suspect]
     Active Substance: AZATHIOPRINE
     Indication: RENAL AND PANCREAS TRANSPLANT
     Route: 064
  2. ADVAGRAF [Suspect]
     Active Substance: TACROLIMUS
     Indication: RENAL AND PANCREAS TRANSPLANT
     Route: 064
  3. ATENOLOL. [Suspect]
     Active Substance: ATENOLOL
     Indication: PRODUCT USED FOR UNKNOWN INDICATION
     Route: 064
  4. ACETYLSALICYLIC ACID [Suspect]
     Active Substance: ASPIRIN
     Indication: PRODUCT USED FOR UNKNOWN INDICATION
     Route: 064

REACTIONS (1)
  - Cleft lip and palate [Not Recovered/Not Resolved]

NARRATIVE: CASE EVENT DATE: 20190325
